FAERS Safety Report 4776756-5 (Version None)
Quarter: 2005Q3

REPORT INFORMATION
  Report Type: 
  Country: None (occurrence: None)
  Receive Date: 20050921
  Receipt Date: 20050906
  Transmission Date: 20060218
  Serious: Yes (Hospitalization, Other)
  Sender: FDA-Public Use
  Company Number: USA050187538

PATIENT
  Age: 86 Year
  Sex: Female

DRUGS (10)
  1. FORTEO [Suspect]
     Indication: OSTEOPOROSIS
     Dosage: 20 UG/1 DAY
     Dates: start: 20040801
  2. EVISTA [Suspect]
     Indication: OSTEOPENIA
     Dates: start: 19981012
  3. VERALAN (VERAPAMIL HYDROCHLOLRIDE) [Concomitant]
  4. PRILOSEC [Concomitant]
  5. DETROL [Concomitant]
  6. CLARINEX [Concomitant]
  7. METOPROLOL [Concomitant]
  8. LEVOXINE (LEVOTHYROXINE SODIUM) [Concomitant]
  9. CALCIUM GLUCONATE [Concomitant]
  10. VITAMIN D [Concomitant]

REACTIONS (27)
  - ARTHROPATHY [None]
  - ARTHROPOD BITE [None]
  - ASTHENIA [None]
  - B-CELL UNCLASSIFIABLE LYMPHOMA LOW GRADE [None]
  - BACK PAIN [None]
  - BLINDNESS [None]
  - BONE DENSITY DECREASED [None]
  - BONE DISORDER [None]
  - BONE PAIN [None]
  - BUNION [None]
  - COLECTOMY [None]
  - COUGH [None]
  - DYSPHONIA [None]
  - ERYTHEMA [None]
  - EYE HAEMORRHAGE [None]
  - FALL [None]
  - INJECTION SITE PAIN [None]
  - MUSCULOSKELETAL STIFFNESS [None]
  - NITRITE URINE PRESENT [None]
  - OSTEOARTHRITIS [None]
  - PAIN [None]
  - PAIN IN EXTREMITY [None]
  - PHARMACEUTICAL PRODUCT COMPLAINT [None]
  - POOR PERIPHERAL CIRCULATION [None]
  - PRURITUS [None]
  - RASH [None]
  - TREMOR [None]
